FAERS Safety Report 8322848-3 (Version None)
Quarter: 2012Q2

REPORT INFORMATION
  Report Type: 
  Country: None (occurrence: None)
  Receive Date: 20120430
  Receipt Date: 20120419
  Transmission Date: 20120825
  Serious: Yes (Hospitalization, Other)
  Sender: FDA-Public Use
  Company Number: DK-ROCHE-1046761

PATIENT
  Sex: Female
  Weight: 74 kg

DRUGS (20)
  1. MABTHERA [Suspect]
     Route: 042
     Dates: start: 20120213
  2. CYCLOPHOSPHAMIDE [Suspect]
     Dosage: 05/MAR/2012: LAST DOSE PRIOE TO ONSET OF SAE
     Route: 042
     Dates: start: 20120305
  3. PREDNISONE TAB [Suspect]
     Indication: MALIGNANT LYMPHOID NEOPLASM
     Route: 048
     Dates: start: 20120207
  4. PREDNISONE TAB [Suspect]
     Dosage: LAST DOSE PRIOR TO SAE WAS ON 9/MAR/2012
     Route: 048
     Dates: start: 20120305
  5. CYCLOPHOSPHAMIDE [Suspect]
     Indication: MALIGNANT LYMPHOID NEOPLASM
     Route: 042
     Dates: start: 20120207
  6. DOXORUBICIN HCL [Suspect]
     Indication: MALIGNANT LYMPHOID NEOPLASM
     Route: 042
     Dates: start: 20120207
  7. MABTHERA [Suspect]
     Dosage: LAST DOSE PRIOR TO SAE WAS ON 13/FEB/2012
     Route: 042
     Dates: start: 20120305
  8. VINCRISTINE [Suspect]
     Route: 042
     Dates: start: 20120305
  9. VINCRISTINE [Suspect]
     Indication: MALIGNANT LYMPHOID NEOPLASM
     Route: 042
     Dates: start: 20120207
  10. ONDANSETRON [Concomitant]
     Indication: NAUSEA
     Route: 048
     Dates: start: 20120207, end: 20120208
  11. PREDNISONE TAB [Suspect]
     Route: 048
     Dates: start: 20120227, end: 20120227
  12. BACTRIM [Concomitant]
     Indication: INFECTION
     Dosage: DOSE: 400/80 MG
     Route: 048
     Dates: start: 20120207
  13. DOXORUBICIN HCL [Suspect]
     Route: 042
     Dates: start: 20120305
  14. NEULASTA [Suspect]
     Indication: MALIGNANT LYMPHOID NEOPLASM
     Route: 058
     Dates: start: 20120210, end: 20120210
  15. NEULASTA [Suspect]
     Route: 058
     Dates: start: 20120223
  16. MABTHERA [Suspect]
     Indication: MALIGNANT LYMPHOID NEOPLASM
     Route: 042
     Dates: start: 20120207
  17. PREDNISONE TAB [Suspect]
     Route: 048
     Dates: start: 20120220, end: 20120224
  18. ACYCLOVIR [Concomitant]
     Indication: INFECTION
     Route: 048
     Dates: start: 20120207
  19. NEULASTA [Suspect]
     Route: 058
     Dates: start: 20120308
  20. LANSOPRAZOLE [Concomitant]
     Route: 048
     Dates: start: 20120113, end: 20120305

REACTIONS (5)
  - BACK PAIN [None]
  - DYSPNOEA [None]
  - NECK PAIN [None]
  - PULMONARY EMBOLISM [None]
  - ARTHRALGIA [None]
